FAERS Safety Report 24686574 (Version 1)
Quarter: 2024Q4

REPORT INFORMATION
  Report Type: Spontaneous
  Country: US (occurrence: None)
  Receive Date: 20241129
  Receipt Date: 20241129
  Transmission Date: 20250115
  Serious: Yes (Life-Threatening, Hospitalization, Disabling, Other)
  Sender: Public
  Company Number: None

PATIENT
  Age: 19 Year
  Sex: Female
  Weight: 60.75 kg

DRUGS (2)
  1. VALIUM [Suspect]
     Active Substance: DIAZEPAM
  2. KLONOPIN [Suspect]
     Active Substance: CLONAZEPAM

REACTIONS (2)
  - Drug withdrawal syndrome [None]
  - Brain injury [None]

NARRATIVE: CASE EVENT DATE: 20230612
